FAERS Safety Report 5717211-5 (Version None)
Quarter: 2008Q2

REPORT INFORMATION
  Report Type: 
  Country: None (occurrence: None)
  Receive Date: 20080424
  Receipt Date: 20080415
  Transmission Date: 20081010
  Serious: Yes (Other)
  Sender: FDA-Public Use
  Company Number: FI-PFIZER INC-2008034159

PATIENT
  Sex: Female

DRUGS (1)
  1. CHAMPIX [Suspect]
     Indication: EX-SMOKER
     Route: 048
     Dates: start: 20080211, end: 20080401

REACTIONS (6)
  - ABNORMAL DREAMS [None]
  - EPISTAXIS [None]
  - GINGIVAL BLEEDING [None]
  - INCREASED APPETITE [None]
  - INSOMNIA [None]
  - MUCOSAL DRYNESS [None]
